FAERS Safety Report 13376294 (Version 3)
Quarter: 2017Q2

REPORT INFORMATION
  Report Type: Spontaneous
  Country: JP (occurrence: JP)
  Receive Date: 20170328
  Receipt Date: 20170410
  Transmission Date: 20170830
  Serious: Yes (Other)
  Sender: FDA-Public Use
  Company Number: JP-JT-EVA201700739KERYXP-001

PATIENT
  Age: 84 Year
  Sex: Male

DRUGS (7)
  1. ISOSORBIDE MONONITRATE. [Concomitant]
     Active Substance: ISOSORBIDE MONONITRATE
     Indication: ANGINA PECTORIS
     Dosage: 20 MG, TID
     Route: 048
     Dates: start: 20170115
  2. GASTROM [Concomitant]
     Active Substance: ECABET SODIUM
     Indication: ULCER
     Dosage: 1 DF, BID
     Route: 048
     Dates: start: 20170115
  3. ARCRANE [Concomitant]
     Indication: ULCER
     Dosage: 1 DF, BID
     Route: 048
     Dates: start: 20170115
  4. RIONA [Suspect]
     Active Substance: FERRIC CITRATE ANHYDROUS
     Indication: HYPERPHOSPHATAEMIA
     Dosage: 250 MG, TID
     Route: 048
     Dates: start: 20170115
  5. ALFACALCIDOL [Concomitant]
     Active Substance: ALFACALCIDOL
     Indication: HYPERPHOSPHATAEMIA
     Dosage: 0.25 MICRO-G, QD
     Route: 048
     Dates: start: 20170115
  6. REBAMIPIDE [Concomitant]
     Active Substance: REBAMIPIDE
     Indication: ULCER
     Dosage: 100 MG, TID
     Route: 048
     Dates: start: 20170115
  7. RENAGEL [Concomitant]
     Active Substance: SEVELAMER HYDROCHLORIDE
     Indication: HYPERPHOSPHATAEMIA
     Dosage: 1 DF, BID
     Route: 048
     Dates: start: 20170115

REACTIONS (1)
  - Gastric haemorrhage [Recovered/Resolved]

NARRATIVE: CASE EVENT DATE: 20170118
